FAERS Safety Report 20009995 (Version 2)
Quarter: 2022Q2

REPORT INFORMATION
  Report Type: Report from Study
  Country: US (occurrence: US)
  Receive Date: 20211029
  Receipt Date: 20220425
  Transmission Date: 20220721
  Serious: No
  Sender: FDA-Public Use
  Company Number: US-SA-SAC20211028000178

PATIENT
  Age: 65 Year
  Sex: Female

DRUGS (2)
  1. DUPIXENT [Suspect]
     Active Substance: DUPILUMAB
     Dosage: 300 MG (FREQ: OTHER)
     Route: 058
     Dates: start: 202001
  2. ROCKLATAN [Suspect]
     Active Substance: LATANOPROST\NETARSUDIL MESYLATE

REACTIONS (7)
  - Ocular discomfort [Unknown]
  - Eyelid margin crusting [Unknown]
  - Visual impairment [Unknown]
  - Eye allergy [Unknown]
  - Lacrimation increased [Unknown]
  - Eye discharge [Unknown]
  - Eye pruritus [Unknown]

NARRATIVE: CASE EVENT DATE: 20211025
